FAERS Safety Report 4768700-1 (Version None)
Quarter: 2005Q3

REPORT INFORMATION
  Report Type: 
  Country: None (occurrence: None)
  Receive Date: 20050913
  Receipt Date: 20050902
  Transmission Date: 20060218
  Serious: Yes (Other)
  Sender: FDA-Public Use
  Company Number: 2005124092

PATIENT
  Sex: Female
  Weight: 89.8122 kg

DRUGS (1)
  1. ZOLOFT [Suspect]
     Indication: PANIC ATTACK
     Dosage: 50 MG

REACTIONS (7)
  - DIZZINESS [None]
  - EAR INFECTION [None]
  - ECONOMIC PROBLEM [None]
  - EXTRASYSTOLES [None]
  - FEELING ABNORMAL [None]
  - PANIC ATTACK [None]
  - TREATMENT NONCOMPLIANCE [None]
